FAERS Safety Report 9792193 (Version 1)
Quarter: 2013Q4

REPORT INFORMATION
  Report Type: Spontaneous
  Country: US (occurrence: None)
  Receive Date: 20131231
  Receipt Date: 20131231
  Transmission Date: 20140711
  Serious: Yes (Life-Threatening, Hospitalization, Disabling, Other)
  Sender: FDA-Public Use
  Company Number: None

PATIENT
  Age: 33 Year
  Sex: Female
  Weight: 193 kg

DRUGS (1)
  1. AMBISOME [Suspect]
     Indication: LUNG CONSOLIDATION
     Dosage: ONCE DAILY INTO A VEIN

REACTIONS (9)
  - Paraesthesia [None]
  - Paraesthesia [None]
  - Neuropathy peripheral [None]
  - Urinary incontinence [None]
  - Functional gastrointestinal disorder [None]
  - Pericardial effusion [None]
  - Balance disorder [None]
  - Fall [None]
  - Loss of control of legs [None]
